FAERS Safety Report 5340024-3 (Version None)
Quarter: 2007Q2

REPORT INFORMATION
  Report Type: 
  Country: None (occurrence: None)
  Receive Date: 20070529
  Receipt Date: 20070522
  Transmission Date: 20071010
  Serious: No
  Sender: FDA-Public Use
  Company Number: 2007-157457-NL

PATIENT
  Age: 76 Year
  Sex: Male

DRUGS (1)
  1. DEXAMETHASONE 0.5MG TAB [Suspect]
     Indication: BRAIN NEOPLASM
     Dosage: 4 MG QD ORAL
     Route: 048
     Dates: start: 20070214, end: 20070313

REACTIONS (3)
  - APHAGIA [None]
  - OESOPHAGEAL CANDIDIASIS [None]
  - REFLUX OESOPHAGITIS [None]
